FAERS Safety Report 10015937 (Version 1)
Quarter: 2014Q1

REPORT INFORMATION
  Report Type: Spontaneous
  Country: NL (occurrence: NL)
  Receive Date: 20140317
  Receipt Date: 20140317
  Transmission Date: 20141002
  Serious: Yes (Other)
  Sender: FDA-Public Use
  Company Number: PHHY2014NL031551

PATIENT
  Age: 10 Year
  Sex: Female

DRUGS (2)
  1. TRILEPTAL [Suspect]
     Dosage: DUTCH TRILEPTAL SUSPENSION
  2. TRILEPTAL [Suspect]
     Dosage: GREEK PARALLEL IMPORT TRILEPTAL SUSPENSION (RVG NUMBER 112691/26830

REACTIONS (1)
  - Convulsion [Unknown]
